FAERS Safety Report 24622651 (Version 2)
Quarter: 2025Q4

REPORT INFORMATION
  Report Type: Spontaneous
  Country: US (occurrence: US)
  Receive Date: 20241115
  Receipt Date: 20251117
  Transmission Date: 20260117
  Serious: Yes (Other)
  Sender: ROCHE
  Company Number: US-ROCHE-10000125310

PATIENT
  Age: 34 Year
  Sex: Female

DRUGS (7)
  1. RITUXIMAB [Interacting]
     Active Substance: RITUXIMAB
     Indication: Multiple sclerosis
     Route: 065
  2. PNEUMOVAX 23 [Interacting]
     Active Substance: PNEUMOCOCCAL VACCINE, POLYVALENT 23
     Indication: Multiple sclerosis
     Route: 065
  3. PRIVIGEN [Concomitant]
     Active Substance: HUMAN IMMUNOGLOBULIN G
     Indication: Product used for unknown indication
     Route: 065
  4. PREDNISONE [Concomitant]
     Active Substance: PREDNISONE
     Indication: Symmetrical drug-related intertriginous and flexural exanthema
     Dosage: 40-30 MG TO 20-10 MG
     Route: 065
  5. GAMUNEX [Concomitant]
     Active Substance: HUMAN IMMUNOGLOBULIN G
     Indication: Symmetrical drug-related intertriginous and flexural exanthema
     Route: 065
  6. TRIAMCINOLONE [Concomitant]
     Active Substance: TRIAMCINOLONE
     Indication: Symmetrical drug-related intertriginous and flexural exanthema
     Dosage: 0.1%
     Route: 061
  7. IBUPROFEN [Concomitant]
     Active Substance: IBUPROFEN
     Indication: Product used for unknown indication
     Route: 065

REACTIONS (8)
  - Upper respiratory tract infection [Unknown]
  - Vaccination failure [Unknown]
  - Vaccine interaction [Unknown]
  - Hypogammaglobulinaemia [Unknown]
  - Influenza [Unknown]
  - COVID-19 [Unknown]
  - Respiratory syncytial virus infection [Unknown]
  - Sinusitis [Unknown]
